FAERS Safety Report 6944421-1 (Version None)
Quarter: 2010Q3

REPORT INFORMATION
  Report Type: 
  Country: None (occurrence: None)
  Receive Date: 20100827
  Receipt Date: 20100817
  Transmission Date: 20110219
  Serious: Yes (Other)
  Sender: FDA-Public Use
  Company Number: US-JNJFOC-20100806360

PATIENT
  Sex: Female

DRUGS (4)
  1. ORTHO TRI-CYCLEN LO [Suspect]
     Indication: CONTRACEPTION
     Route: 048
  2. TRI-SPRINTEC [Suspect]
     Indication: CONTRACEPTION
     Route: 048
  3. ATENOLOL [Suspect]
     Indication: MITRAL VALVE PROLAPSE
     Route: 048
  4. VACCINATION [Suspect]
     Indication: INFLUENZA IMMUNISATION
     Route: 050

REACTIONS (4)
  - AMNIOTIC FLUID VOLUME DECREASED [None]
  - DRUG EXPOSURE DURING PREGNANCY [None]
  - PREGNANCY ON ORAL CONTRACEPTIVE [None]
  - PREMATURE LABOUR [None]
